FAERS Safety Report 17719164 (Version 3)
Quarter: 2020Q2

REPORT INFORMATION
  Report Type: Spontaneous
  Country: FR (occurrence: FR)
  Receive Date: 20200428
  Receipt Date: 20200512
  Transmission Date: 20200714
  Serious: Yes (Death)
  Sender: FDA-Public Use
  Company Number: FR-ABBVIE-20K-056-3377978-00

PATIENT
  Age: 65 Year
  Sex: Male

DRUGS (5)
  1. ZITHROMAX [Concomitant]
     Active Substance: AZITHROMYCIN DIHYDRATE
     Indication: PRODUCT USED FOR UNKNOWN INDICATION
     Dosage: MONDAY - WEDNESDAY - FRIDAY MORNING
     Route: 048
  2. KALETRA [Suspect]
     Active Substance: LOPINAVIR\RITONAVIR
     Indication: CORONAVIRUS INFECTION
     Dosage: REMPLACE LE 11/04 PAR KALETRA SOL BUV 5ML MATIN + SOIR
     Route: 048
     Dates: start: 20200408, end: 20200410
  3. SYMBICORT [Concomitant]
     Active Substance: BUDESONIDE\FORMOTEROL FUMARATE DIHYDRATE
     Indication: PRODUCT USED FOR UNKNOWN INDICATION
     Dosage: 400/12 MICROGRAM
  4. SEEBRI BREEZHALER [Concomitant]
     Active Substance: GLYCOPYRROLATE
     Indication: PRODUCT USED FOR UNKNOWN INDICATION
     Route: 055
  5. PRIVIGEN [Concomitant]
     Active Substance: HUMAN IMMUNOGLOBULIN G
     Indication: PRODUCT USED FOR UNKNOWN INDICATION
     Route: 042

REACTIONS (11)
  - Cholestatic liver injury [Recovering/Resolving]
  - Cholestasis [Not Recovered/Not Resolved]
  - Failure to thrive [Unknown]
  - Decreased appetite [Unknown]
  - Asphyxia [Fatal]
  - Respiratory disorder [Unknown]
  - Inflammation [Recovering/Resolving]
  - Hepatitis [Not Recovered/Not Resolved]
  - Cell death [Not Recovered/Not Resolved]
  - Psychiatric symptom [Unknown]
  - Coronavirus infection [Fatal]

NARRATIVE: CASE EVENT DATE: 2020
